FAERS Safety Report 23393289 (Version 1)
Quarter: 2024Q1

REPORT INFORMATION
  Report Type: Spontaneous
  Country: US (occurrence: None)
  Receive Date: 20240111
  Receipt Date: 20240111
  Transmission Date: 20240410
  Serious: Yes (Other)
  Sender: FDA-Public Use
  Company Number: None

PATIENT
  Age: 34 Year
  Sex: Female
  Weight: 103.5 kg

DRUGS (5)
  1. SERTRALINE [Suspect]
     Active Substance: SERTRALINE HYDROCHLORIDE
     Indication: Anxiety
     Dosage: OTHER QUANTITY : 1 TABLET(S);?FREQUENCY : AT BEDTIME;?
     Route: 048
     Dates: start: 20231116, end: 20231129
  2. ALBUTEROL [Concomitant]
     Active Substance: ALBUTEROL
  3. D-Mannose w/ Cranberry [Concomitant]
  4. Centrum Women^s Multi Vitamin [Concomitant]
  5. ALIGN [Concomitant]
     Active Substance: BIFIDOBACTERIUM LONGUM SUBSP. INFANTIS

REACTIONS (5)
  - Chest pain [None]
  - Blood pressure increased [None]
  - Blood pressure fluctuation [None]
  - Therapy cessation [None]
  - Drug hypersensitivity [None]

NARRATIVE: CASE EVENT DATE: 20231201
